FAERS Safety Report 4906541-2 (Version None)
Quarter: 2006Q1

REPORT INFORMATION
  Report Type: 
  Country: None (occurrence: None)
  Receive Date: 20060209
  Receipt Date: 20060203
  Transmission Date: 20060701
  Serious: Yes (Hospitalization, Disabling)
  Sender: FDA-Public Use
  Company Number: US-MERCK-0602USA01017

PATIENT
  Sex: Female
  Weight: 73 kg

DRUGS (5)
  1. VIOXX [Suspect]
     Indication: FIBROMYALGIA
     Route: 048
     Dates: start: 19990101, end: 20030301
  2. VIOXX [Suspect]
     Indication: PAIN
     Route: 048
     Dates: start: 19990101, end: 20030301
  3. ALEVE [Concomitant]
     Indication: PAIN
     Route: 065
  4. VIOXX [Suspect]
     Route: 048
     Dates: start: 19990301, end: 20030301
  5. VIOXX [Suspect]
     Route: 048
     Dates: start: 19990301, end: 20030301

REACTIONS (2)
  - MYOCARDIAL INFARCTION [None]
  - OVERDOSE [None]
